FAERS Safety Report 25587504 (Version 2)
Quarter: 2025Q3

REPORT INFORMATION
  Report Type: Spontaneous
  Country: US (occurrence: US)
  Receive Date: 20250721
  Receipt Date: 20250722
  Transmission Date: 20251020
  Serious: Yes (Other)
  Sender: ALEXION PHARMACEUTICALS
  Company Number: US-ASTRAZENECA-202507GLO012379US

PATIENT
  Sex: Male

DRUGS (24)
  1. NEXIUM [Suspect]
     Active Substance: ESOMEPRAZOLE MAGNESIUM
  2. ZYLOPRIM [Concomitant]
     Active Substance: ALLOPURINOL
  3. WELLBUTRIN [Concomitant]
     Active Substance: BUPROPION HYDROCHLORIDE
  4. CLOPIDOGREL [Concomitant]
     Active Substance: CLOPIDOGREL BISULFATE
  5. COENZYME Q10 [Concomitant]
     Active Substance: DIETARY SUPPLEMENT\UBIDECARENONE
  6. FEBUXOSTAT [Concomitant]
     Active Substance: FEBUXOSTAT
  7. HYDROCORTISONE [Concomitant]
     Active Substance: HYDROCORTISONE
  8. LANSOPRAZOLE [Concomitant]
     Active Substance: LANSOPRAZOLE
  9. LEVOCETIRIZINE [Concomitant]
     Active Substance: LEVOCETIRIZINE
  10. LOVASTATIN [Concomitant]
     Active Substance: LOVASTATIN
  11. METOPROLOL TARTRATE [Concomitant]
     Active Substance: METOPROLOL TARTRATE
  12. NITROSTAT [Concomitant]
     Active Substance: NITROGLYCERIN
  13. PREDNISONE [Concomitant]
     Active Substance: PREDNISONE
  14. PREGABALIN [Concomitant]
     Active Substance: PREGABALIN
  15. SODIUM BICARBONATE [Concomitant]
     Active Substance: SODIUM BICARBONATE
  16. ACTIGALL [Concomitant]
     Active Substance: URSODIOL
  17. CYCLOSPORINE [Concomitant]
     Active Substance: CYCLOSPORINE
  18. TRUVADA [Concomitant]
     Active Substance: EMTRICITABINE\TENOFOVIR DISOPROXIL FUMARATE
  19. FUROSEMIDE [Concomitant]
     Active Substance: FUROSEMIDE
  20. WEGOVY [Concomitant]
     Active Substance: SEMAGLUTIDE
  21. SEMAGLUTIDE [Concomitant]
     Active Substance: SEMAGLUTIDE
  22. TADALAFIL [Concomitant]
     Active Substance: TADALAFIL
  23. CARBINOXAMINE MALEATE [Concomitant]
     Active Substance: CARBINOXAMINE MALEATE
  24. BUPROPION [Concomitant]
     Active Substance: BUPROPION

REACTIONS (1)
  - Gastric cancer [Unknown]
